FAERS Safety Report 16428748 (Version 1)
Quarter: 2019Q2

REPORT INFORMATION
  Report Type: Spontaneous
  Country: BR (occurrence: BR)
  Receive Date: 20190613
  Receipt Date: 20190613
  Transmission Date: 20190711
  Serious: Yes (Life-Threatening, Other)
  Sender: FDA-Public Use
  Company Number: BR-B.I. PHARMACEUTICALS,INC./RIDGEFIELD-2019-BI-025542

PATIENT
  Age: 42 Year
  Sex: Male

DRUGS (5)
  1. ATROVENT [Suspect]
     Active Substance: IPRATROPIUM BROMIDE
     Route: 055
  2. ATROVENT [Suspect]
     Active Substance: IPRATROPIUM BROMIDE
     Indication: ASTHMA
     Dosage: UNIT DOSE: 3 INHALATIONS
     Route: 055
  3. BEROTEC [Suspect]
     Active Substance: FENOTEROL HYDROBROMIDE
     Route: 055
  4. BEROTEC [Suspect]
     Active Substance: FENOTEROL HYDROBROMIDE
     Indication: ASTHMA
     Dosage: UNIT DOSE: 3 INHALATIONS
     Route: 055
  5. METILPREDNISOLONA [Concomitant]
     Active Substance: METHYLPREDNISOLONE
     Indication: PRODUCT USED FOR UNKNOWN INDICATION
     Route: 042

REACTIONS (9)
  - Respiratory acidosis [Not Recovered/Not Resolved]
  - Bradycardia [Unknown]
  - Hypotension [Unknown]
  - Oxygen saturation decreased [Unknown]
  - Pneumothorax [Recovered/Resolved]
  - Weaning failure [Unknown]
  - Subcutaneous emphysema [Unknown]
  - Tachypnoea [Unknown]
  - Communication disorder [Unknown]
